FAERS Safety Report 8888243 (Version 2)
Quarter: 2012Q4

REPORT INFORMATION
  Report Type: Report from Study
  Country: CA (occurrence: CA)
  Receive Date: 20121106
  Receipt Date: 20121112
  Transmission Date: 20130627
  Serious: Yes (Hospitalization)
  Sender: FDA-Public Use
  Company Number: CA-JNJFOC-20121016300

PATIENT
  Age: 30 None
  Sex: Male
  Weight: 82.3 kg

DRUGS (9)
  1. REMICADE [Suspect]
     Indication: CROHN^S DISEASE
     Route: 042
     Dates: start: 20110609
  2. REMICADE [Suspect]
     Indication: CROHN^S DISEASE
     Route: 042
     Dates: start: 20121101
  3. REMICADE [Suspect]
     Indication: COLITIS ULCERATIVE
     Route: 042
     Dates: start: 20110609
  4. REMICADE [Suspect]
     Indication: COLITIS ULCERATIVE
     Route: 042
     Dates: start: 20121101
  5. CALCIUM [Concomitant]
     Route: 065
  6. VITAMIN D [Concomitant]
     Route: 065
  7. IMURAN [Concomitant]
     Route: 048
  8. PREDNISONE [Concomitant]
     Route: 065
  9. ASACOL [Concomitant]
     Route: 065

REACTIONS (4)
  - Abdominal pain [Unknown]
  - Haemorrhage [Unknown]
  - Drug ineffective [Unknown]
  - Diarrhoea [Unknown]
